FAERS Safety Report 10907682 (Version 1)
Quarter: 2015Q1

REPORT INFORMATION
  Report Type: Spontaneous
  Country: None (occurrence: None)
  Receive Date: 20150309
  Receipt Date: 20150309
  Transmission Date: 20150721
  Serious: No
  Sender: FDA-Public Use
  Company Number: None

PATIENT
  Age: 29 Year
  Sex: Female
  Weight: 95.26 kg

DRUGS (4)
  1. CEFUROXIME. [Suspect]
     Active Substance: CEFUROXIME
     Indication: SINUSITIS BACTERIAL
     Dosage: 1 TAKEN BY MOUTH
     Route: 048
     Dates: start: 20150226, end: 20150304
  2. WELLBUTRIN [Concomitant]
     Active Substance: BUPROPION HYDROCHLORIDE
  3. DAILY MULTIVITAMIN [Concomitant]
     Active Substance: VITAMINS
  4. BIRTH COTROL PILLS [Concomitant]

REACTIONS (5)
  - Abdominal pain upper [None]
  - Vomiting [None]
  - Pyrexia [None]
  - Chills [None]
  - Nausea [None]

NARRATIVE: CASE EVENT DATE: 20150304
